FAERS Safety Report 15015310 (Version 2)
Quarter: 2018Q3

REPORT INFORMATION
  Report Type: Spontaneous
  Country: JP (occurrence: JP)
  Receive Date: 20180615
  Receipt Date: 20180831
  Transmission Date: 20181010
  Serious: Yes (Death, Hospitalization)
  Sender: FDA-Public Use
  Company Number: JP-EISAI MEDICAL RESEARCH-EC-2018-040097

PATIENT
  Sex: Male
  Weight: 63 kg

DRUGS (4)
  1. LENVIMA [Suspect]
     Active Substance: LENVATINIB
     Route: 048
     Dates: start: 20180514, end: 20180516
  2. LENVIMA [Suspect]
     Active Substance: LENVATINIB
     Route: 048
     Dates: start: 20180530, end: 20180604
  3. PREDONINE [Concomitant]
     Active Substance: PREDNISOLONE
     Indication: PRODUCT USE IN UNAPPROVED INDICATION
     Route: 048
     Dates: start: 20180530
  4. LENVIMA [Suspect]
     Active Substance: LENVATINIB
     Indication: HEPATOCELLULAR CARCINOMA
     Route: 048
     Dates: start: 20180509, end: 20180513

REACTIONS (12)
  - Proteinuria [Recovering/Resolving]
  - C-reactive protein increased [Recovered/Resolved]
  - Pyrexia [Recovering/Resolving]
  - Abdominal pain [Recovered/Resolved]
  - Tumour lysis syndrome [Recovered/Resolved]
  - Blood lactate dehydrogenase increased [Recovered/Resolved]
  - Blood pressure increased [Recovered/Resolved]
  - Malignant neoplasm progression [Fatal]
  - Alanine aminotransferase increased [Fatal]
  - Hypothyroidism [Recovering/Resolving]
  - Blood bilirubin increased [Fatal]
  - Aspartate aminotransferase increased [Fatal]

NARRATIVE: CASE EVENT DATE: 20180514
